FAERS Safety Report 13622865 (Version 2)
Quarter: 2017Q2

REPORT INFORMATION
  Report Type: Spontaneous
  Country: CN (occurrence: CN)
  Receive Date: 20170607
  Receipt Date: 20170623
  Transmission Date: 20170830
  Serious: Yes (Life-Threatening, Hospitalization, Other)
  Sender: FDA-Public Use
  Company Number: CN-ASTRAZENECA-2017SE58711

PATIENT
  Age: 45 Year
  Sex: Male

DRUGS (3)
  1. OFLOXACIN. [Concomitant]
     Active Substance: OFLOXACIN
     Indication: GASTRIC ULCER
  2. OFLOXACIN. [Concomitant]
     Active Substance: OFLOXACIN
     Indication: HELICOBACTER INFECTION
  3. NEXIUM [Suspect]
     Active Substance: ESOMEPRAZOLE MAGNESIUM
     Route: 048
     Dates: start: 201411

REACTIONS (6)
  - Deafness [Recovered/Resolved]
  - Ear pain [Recovered/Resolved]
  - Vision blurred [Recovered/Resolved]
  - Drug-induced liver injury [Recovered/Resolved]
  - Asthenia [Unknown]
  - Hepatomegaly [Unknown]
